FAERS Safety Report 25789372 (Version 1)
Quarter: 2025Q3

REPORT INFORMATION
  Report Type: Spontaneous
  Country: US (occurrence: US)
  Receive Date: 20250911
  Receipt Date: 20250911
  Transmission Date: 20251020
  Serious: No
  Sender: ELI LILLY AND COMPANY
  Company Number: US-ELI_LILLY_AND_COMPANY-US202509004908

PATIENT
  Age: 54 Year
  Sex: Female

DRUGS (12)
  1. MOUNJARO [Suspect]
     Active Substance: TIRZEPATIDE
     Indication: Lipoedema
     Dosage: 2.5 MG, WEEKLY (1/W)
     Route: 065
     Dates: start: 20250831
  2. MOUNJARO [Suspect]
     Active Substance: TIRZEPATIDE
     Indication: Lipoedema
     Dosage: 2.5 MG, WEEKLY (1/W)
     Route: 065
     Dates: start: 20250831
  3. MOUNJARO [Suspect]
     Active Substance: TIRZEPATIDE
     Indication: Lipoedema
     Dosage: 2.5 MG, WEEKLY (1/W)
     Route: 065
     Dates: start: 20250831
  4. MOUNJARO [Suspect]
     Active Substance: TIRZEPATIDE
     Indication: Lipoedema
     Dosage: 2.5 MG, WEEKLY (1/W)
     Route: 065
     Dates: start: 20250831
  5. MOUNJARO [Suspect]
     Active Substance: TIRZEPATIDE
     Indication: Lymphoedema
  6. MOUNJARO [Suspect]
     Active Substance: TIRZEPATIDE
     Indication: Lymphoedema
  7. MOUNJARO [Suspect]
     Active Substance: TIRZEPATIDE
     Indication: Lymphoedema
  8. MOUNJARO [Suspect]
     Active Substance: TIRZEPATIDE
     Indication: Lymphoedema
  9. MOUNJARO [Suspect]
     Active Substance: TIRZEPATIDE
     Indication: Mast cell activation syndrome
  10. MOUNJARO [Suspect]
     Active Substance: TIRZEPATIDE
     Indication: Mast cell activation syndrome
  11. MOUNJARO [Suspect]
     Active Substance: TIRZEPATIDE
     Indication: Mast cell activation syndrome
  12. MOUNJARO [Suspect]
     Active Substance: TIRZEPATIDE
     Indication: Mast cell activation syndrome

REACTIONS (4)
  - Sensitive skin [Recovering/Resolving]
  - Pain [Recovering/Resolving]
  - Pain of skin [Recovering/Resolving]
  - Off label use [Unknown]

NARRATIVE: CASE EVENT DATE: 20250831
